FAERS Safety Report 21616405 (Version 1)
Quarter: 2022Q4

REPORT INFORMATION
  Report Type: Report from Study
  Country: AR (occurrence: AR)
  Receive Date: 20221118
  Receipt Date: 20221118
  Transmission Date: 20230113
  Serious: Yes (Other)
  Sender: FDA-Public Use
  Company Number: AR-002147023-NVSC2021AR298397

PATIENT
  Age: 73 Year
  Sex: Male

DRUGS (1)
  1. COSENTYX [Suspect]
     Active Substance: SECUKINUMAB
     Indication: Psoriasis
     Dosage: 300 MG, QMO
     Route: 058
     Dates: start: 20171225, end: 20211129

REACTIONS (9)
  - Inflammation [Unknown]
  - Peripheral swelling [Unknown]
  - Peripheral swelling [Unknown]
  - Mobility decreased [Unknown]
  - Dysstasia [Unknown]
  - Pain [Unknown]
  - Arthropathy [Unknown]
  - Condition aggravated [Unknown]
  - Pustule [Unknown]

NARRATIVE: CASE EVENT DATE: 20211101
